FAERS Safety Report 14249433 (Version 3)
Quarter: 2017Q4

REPORT INFORMATION
  Report Type: Report from Study
  Country: IE (occurrence: IE)
  Receive Date: 20171204
  Receipt Date: 20171228
  Transmission Date: 20180321
  Serious: Yes (Hospitalization, Other)
  Sender: FDA-Public Use
  Company Number: IE-MYLANLABS-2017M1075858

PATIENT
  Age: 59 Year
  Sex: Male

DRUGS (17)
  1. DUODOPA [Interacting]
     Active Substance: CARBIDOPA\LEVODOPA
     Dosage: CONTINUOUS DOSE 3.7ML/HR
     Route: 050
  2. DUODOPA [Interacting]
     Active Substance: CARBIDOPA\LEVODOPA
     Dosage: CONTINUOUS DOSE 3.8ML/HR
     Route: 050
  3. CIPROFLOXACIN. [Suspect]
     Active Substance: CIPROFLOXACIN
     Indication: ORCHITIS
     Dosage: 1 DAY
     Route: 048
     Dates: start: 201709
  4. DUODOPA [Interacting]
     Active Substance: CARBIDOPA\LEVODOPA
     Dosage: 1 CASSETTE, CONTINUOUS RATE: UNKNOWN
     Route: 050
  5. DUODOPA [Interacting]
     Active Substance: CARBIDOPA\LEVODOPA
     Dosage: CONTINUOUS RATE: 3.8ML/HR
     Route: 050
  6. ESCITALOPRAM [Concomitant]
     Active Substance: ESCITALOPRAM OXALATE
     Indication: PRODUCT USED FOR UNKNOWN INDICATION
     Dosage: 1 DAY
     Route: 048
  7. DUPHALAC [Concomitant]
     Active Substance: LACTULOSE
     Indication: PRODUCT USED FOR UNKNOWN INDICATION
     Dosage: 1 DAY
     Route: 048
  8. CLONAZEPAM. [Concomitant]
     Active Substance: CLONAZEPAM
     Indication: PRODUCT USED FOR UNKNOWN INDICATION
     Dosage: 1 DAY
     Route: 048
  9. DUODOPA [Interacting]
     Active Substance: CARBIDOPA\LEVODOPA
     Dosage: CONTINUOUS DOSE 3.6ML/HR, EXTRA DOSE 1ML PRN.
     Route: 050
  10. CETIRIZINE [Concomitant]
     Active Substance: CETIRIZINE HYDROCHLORIDE
     Indication: PRODUCT USED FOR UNKNOWN INDICATION
     Route: 048
  11. SINEMET CR [Concomitant]
     Active Substance: CARBIDOPA\LEVODOPA
     Indication: PRODUCT USED FOR UNKNOWN INDICATION
     Dosage: NIGHT
     Route: 048
  12. DUODOPA [Interacting]
     Active Substance: CARBIDOPA\LEVODOPA
     Dosage: UNK
  13. DUODOPA [Interacting]
     Active Substance: CARBIDOPA\LEVODOPA
     Indication: PARKINSON^S DISEASE
     Dosage: CONTINUOUS RATE: 3.5ML/HR
     Route: 050
  14. DIAZEPAM. [Concomitant]
     Active Substance: DIAZEPAM
     Indication: PRODUCT USED FOR UNKNOWN INDICATION
     Dosage: 1 DAY
     Route: 048
  15. DUPHALAC [Concomitant]
     Active Substance: LACTULOSE
     Indication: PRODUCT USED FOR UNKNOWN INDICATION
  16. DUODOPA [Interacting]
     Active Substance: CARBIDOPA\LEVODOPA
     Dosage: 1 CASSETTE, CONTINUOUS
     Route: 050
  17. DUODOPA [Interacting]
     Active Substance: CARBIDOPA\LEVODOPA
     Dosage: EXTRA DOSE 0.9ML PRN
     Route: 050

REACTIONS (12)
  - Anxiety [Recovered/Resolved]
  - On and off phenomenon [Recovered/Resolved]
  - Testicular swelling [Recovered/Resolved]
  - Drug interaction [Recovered/Resolved]
  - Constipation [Recovered/Resolved]
  - Orchitis [Recovered/Resolved]
  - Drug ineffective [Recovered/Resolved]
  - Bradykinesia [Recovered/Resolved]
  - Constipation [Recovered/Resolved]
  - Freezing phenomenon [Recovered/Resolved]
  - Parkinson^s disease [Recovered/Resolved]
  - On and off phenomenon [Recovered/Resolved]

NARRATIVE: CASE EVENT DATE: 20170827
